FAERS Safety Report 7792764-4 (Version None)
Quarter: 2011Q4

REPORT INFORMATION
  Report Type: 
  Country: None (occurrence: None)
  Receive Date: 20111003
  Receipt Date: 20100922
  Transmission Date: 20120403
  Serious: Yes (Other)
  Sender: FDA-Public Use
  Company Number: US-BRISTOL-MYERS SQUIBB COMPANY-15240716

PATIENT
  Age: 88 Year
  Sex: Female
  Weight: 148 kg

DRUGS (12)
  1. METAMUCIL-2 [Concomitant]
  2. UROCIT-K [Concomitant]
  3. DIGOXIN [Concomitant]
  4. CARVEDILOL [Concomitant]
  5. CALCIUM CARBONATE [Concomitant]
  6. METOPROLOL TARTRATE [Concomitant]
  7. NORVASC [Concomitant]
  8. HYDROCHLOROTHIAZIDE [Concomitant]
  9. AVAPRO [Suspect]
     Indication: HYPERTENSION
     Dosage: RESUMED
     Route: 048
     Dates: start: 20100810
  10. CATAPRES [Concomitant]
     Dosage: AT BED TIME
  11. VITAMIN D [Concomitant]
  12. CENTRUM SILVER [Concomitant]

REACTIONS (5)
  - RASH [None]
  - URINARY TRACT INFECTION [None]
  - TREMOR [None]
  - HYPERTENSION [None]
  - URINE OUTPUT DECREASED [None]
